FAERS Safety Report 16960234 (Version 6)
Quarter: 2020Q3

REPORT INFORMATION
  Report Type: Report from Study
  Country: BE (occurrence: BE)
  Receive Date: 20191025
  Receipt Date: 20200708
  Transmission Date: 20201102
  Serious: Yes (Hospitalization, Disabling, Other)
  Sender: FDA-Public Use
  Company Number: BE-ASPEN-GLO2019BE011081

PATIENT
  Age: 73 Year
  Sex: Male

DRUGS (2)
  1. DEXAMETHASONE. [Suspect]
     Active Substance: DEXAMETHASONE
     Indication: PLASMA CELL MYELOMA
     Dosage: UNK
     Route: 065
  2. REVLIMID [Suspect]
     Active Substance: LENALIDOMIDE
     Indication: PLASMA CELL MYELOMA
     Dosage: UNK
     Route: 048

REACTIONS (2)
  - Ischaemic stroke [Recovered/Resolved with Sequelae]
  - Fatigue [Recovered/Resolved]

NARRATIVE: CASE EVENT DATE: 20171229
